FAERS Safety Report 6488876-8 (Version None)
Quarter: 2009Q4

REPORT INFORMATION
  Report Type: 
  Country: None (occurrence: None)
  Receive Date: 20091207
  Receipt Date: 20091120
  Transmission Date: 20100525
  Serious: Yes (Other)
  Sender: FDA-Public Use
  Company Number: JPI-P-008856

PATIENT
  Age: 60 Year
  Sex: Male
  Weight: 61.2356 kg

DRUGS (12)
  1. XYREM [Suspect]
     Indication: HYPERSOMNIA
     Dosage: SEE IMAGE
     Route: 048
     Dates: start: 20060718, end: 20070101
  2. XYREM [Suspect]
     Indication: SOMNOLENCE
     Dosage: SEE IMAGE
     Route: 048
     Dates: start: 20060718, end: 20070101
  3. XYREM [Suspect]
     Indication: HYPERSOMNIA
     Dosage: SEE IMAGE
     Route: 048
     Dates: start: 20070101, end: 20091012
  4. XYREM [Suspect]
     Indication: SOMNOLENCE
     Dosage: SEE IMAGE
     Route: 048
     Dates: start: 20070101, end: 20091012
  5. XYREM [Suspect]
     Indication: HYPERSOMNIA
     Dosage: SEE IMAGE
     Route: 048
     Dates: start: 20091013
  6. XYREM [Suspect]
     Indication: SOMNOLENCE
     Dosage: SEE IMAGE
     Route: 048
     Dates: start: 20091013
  7. XYREM [Suspect]
     Indication: HYPERSOMNIA
     Dosage: SEE IMAGE
     Route: 048
     Dates: start: 20091013
  8. XYREM [Suspect]
     Indication: SOMNOLENCE
     Dosage: SEE IMAGE
     Route: 048
     Dates: start: 20091013
  9. ATORVASTATIN CALCIUM [Concomitant]
  10. HYDROCHLOROTHIAZIDE AND LOSARTAN [Concomitant]
  11. VITAMIN D [Concomitant]
  12. METFORMIN HCL [Concomitant]

REACTIONS (12)
  - BALANCE DISORDER [None]
  - BLOOD GLUCOSE INCREASED [None]
  - CONDITION AGGRAVATED [None]
  - CONTUSION [None]
  - FALL [None]
  - MEMORY IMPAIRMENT [None]
  - MIGRAINE [None]
  - MIGRAINE WITH AURA [None]
  - NUCLEAR MAGNETIC RESONANCE IMAGING ABNORMAL [None]
  - PHOTOPSIA [None]
  - SOMNAMBULISM [None]
  - TRANSIENT ISCHAEMIC ATTACK [None]
